FAERS Safety Report 6478266-6 (Version None)
Quarter: 2009Q4

REPORT INFORMATION
  Report Type: 
  Country: None (occurrence: None)
  Receive Date: 20091202
  Receipt Date: 20091117
  Transmission Date: 20100525
  Serious: Yes (Hospitalization)
  Sender: FDA-Public Use
  Company Number: AUR-APL-2009-01329

PATIENT
  Age: 42 Year
  Sex: Female

DRUGS (6)
  1. METFORMIN HCL [Suspect]
     Dosage: 500 MG
  2. DICLOFENAC [Suspect]
     Dosage: 75MG
  3. NORTRIPTYLINE [Suspect]
     Dosage: 10MG  DAILY- ORAL
     Route: 048
  4. RIZATRIPTAN BENZOATE [Suspect]
     Dosage: 10MG
  5. TEMAZEPAM [Suspect]
     Dosage: 10 MG- DAILY
  6. CO-PROXAMOL (DI-GESIC) [Suspect]

REACTIONS (10)
  - DUODENAL ULCER [None]
  - GASTRITIS [None]
  - HAEMATEMESIS [None]
  - HAEMOGLOBIN DECREASED [None]
  - HEPATIC STEATOSIS [None]
  - INFLAMMATORY BOWEL DISEASE [None]
  - LARGE INTESTINAL ULCER [None]
  - OESOPHAGITIS ULCERATIVE [None]
  - PALLOR [None]
  - WEIGHT DECREASED [None]
